FAERS Safety Report 23478239 (Version 1)
Quarter: 2024Q1

REPORT INFORMATION
  Report Type: Spontaneous
  Country: US (occurrence: US)
  Receive Date: 20240204
  Receipt Date: 20240204
  Transmission Date: 20240410
  Serious: No
  Sender: FDA-Public Use
  Company Number: US-EXELIXIS-CABO-23070451

PATIENT
  Age: 11 Year
  Sex: Female
  Weight: 26.6 kg

DRUGS (3)
  1. CABOMETYX [Suspect]
     Active Substance: CABOZANTINIB S-MALATE
     Indication: Osteosarcoma
     Dosage: 40 MG
     Route: 065
     Dates: start: 20230814
  2. MIFAMURTIDE [Suspect]
     Active Substance: MIFAMURTIDE
     Indication: Osteosarcoma
     Dosage: 2 MILLIGRAM, 2/WEEK
     Route: 042
     Dates: start: 20230814
  3. MIFAMURTIDE [Suspect]
     Active Substance: MIFAMURTIDE
     Dosage: UN UNK, 2/WEEK
     Route: 042

REACTIONS (3)
  - Pyrexia [Recovered/Resolved]
  - Rash maculo-papular [Recovered/Resolved]
  - Fatigue [Recovered/Resolved]

NARRATIVE: CASE EVENT DATE: 20230815
